FAERS Safety Report 25656462 (Version 1)
Quarter: 2025Q3

REPORT INFORMATION
  Report Type: Report from Study
  Country: EU (occurrence: EU)
  Receive Date: 20250807
  Receipt Date: 20250807
  Transmission Date: 20251021
  Serious: Yes (Other)
  Sender: UCB
  Company Number: EU-UCBSA-2025047059

PATIENT
  Sex: Female

DRUGS (1)
  1. BRIVARACETAM [Suspect]
     Active Substance: BRIVARACETAM
     Indication: Seizure

REACTIONS (7)
  - Abortion induced [Unknown]
  - Stillbirth [Unknown]
  - Abortion spontaneous [Unknown]
  - Ectopic pregnancy [Unknown]
  - Benign hydatidiform mole [Unknown]
  - Abnormal product of conception [Unknown]
  - Maternal exposure during pregnancy [Unknown]
